FAERS Safety Report 20373460 (Version 12)
Quarter: 2022Q2

REPORT INFORMATION
  Report Type: Spontaneous
  Country: US (occurrence: US)
  Receive Date: 20220125
  Receipt Date: 20220524
  Transmission Date: 20220721
  Serious: Yes (Hospitalization, Other)
  Sender: FDA-Public Use
  Company Number: US-UNITED THERAPEUTICS-UNT-2022-000985

PATIENT
  Age: 70 Year
  Sex: Female
  Weight: 69.841 kg

DRUGS (11)
  1. REMODULIN [Suspect]
     Active Substance: TREPROSTINIL
     Indication: Pulmonary arterial hypertension
     Dosage: UNK, CONTINUING
     Route: 041
     Dates: start: 20190926
  2. REMODULIN [Suspect]
     Active Substance: TREPROSTINIL
     Dosage: 0.134 ?G/KG, CONTINUING
     Route: 041
  3. REMODULIN [Suspect]
     Active Substance: TREPROSTINIL
     Dosage: 0.137 ?G/KG, CONTINUING
     Route: 041
  4. REMODULIN [Suspect]
     Active Substance: TREPROSTINIL
     Dosage: 0.139 ?G/KG, CONTINUING
     Route: 041
  5. REMODULIN [Suspect]
     Active Substance: TREPROSTINIL
     Dosage: UNK, CONTINUING
     Route: 041
  6. REMODULIN [Suspect]
     Active Substance: TREPROSTINIL
     Indication: Pulmonary arterial hypertension
     Dosage: UNK, CONTINUING
     Route: 041
  7. REMODULIN [Suspect]
     Active Substance: TREPROSTINIL
     Dosage: 0.137 ?G/KG, CONTINUING
     Route: 041
  8. REMODULIN [Suspect]
     Active Substance: TREPROSTINIL
     Dosage: UNK, CONTINUING (DOSE INCEASED)
     Route: 041
     Dates: start: 20220115
  9. REMODULIN [Suspect]
     Active Substance: TREPROSTINIL
     Dosage: 0.139 ?G/KG, CONTINUING
     Route: 041
  10. ADEMPAS [Suspect]
     Active Substance: RIOCIGUAT
     Indication: Product used for unknown indication
     Dosage: 2.5 MG
     Route: 065
  11. ADEMPAS [Suspect]
     Active Substance: RIOCIGUAT
     Dosage: 2 MG
     Route: 065

REACTIONS (25)
  - Autoimmune disorder [Recovering/Resolving]
  - Muscle disorder [Recovering/Resolving]
  - Limb discomfort [Recovering/Resolving]
  - Macular degeneration [Unknown]
  - Hypotension [Recovered/Resolved]
  - Inflammation [Recovering/Resolving]
  - Gastric disorder [Recovering/Resolving]
  - Dizziness [Recovered/Resolved]
  - Lower respiratory tract infection [Unknown]
  - Oedema [Unknown]
  - Weight increased [Unknown]
  - Feeling abnormal [Unknown]
  - Peripheral swelling [Recovered/Resolved]
  - Presyncope [Recovering/Resolving]
  - Malaise [Unknown]
  - Anxiety [Unknown]
  - Nervousness [Unknown]
  - Device connection issue [Recovered/Resolved]
  - Vomiting [Unknown]
  - Diarrhoea [Unknown]
  - Fatigue [Unknown]
  - Asthenia [Unknown]
  - Hypervolaemia [Unknown]
  - Paranasal sinus hypersecretion [Unknown]
  - Abdominal discomfort [Unknown]

NARRATIVE: CASE EVENT DATE: 20220117
